FAERS Safety Report 20051175 (Version 1)
Quarter: 2021Q4

REPORT INFORMATION
  Report Type: Report from Study
  Country: EG (occurrence: EG)
  Receive Date: 20211110
  Receipt Date: 20211110
  Transmission Date: 20220303
  Serious: Yes (Death, Hospitalization)
  Sender: FDA-Public Use
  Company Number: EG-NOVARTISPH-NVSC2021EG255481

PATIENT
  Age: 51 Year
  Sex: Male

DRUGS (2)
  1. ENTRESTO [Suspect]
     Active Substance: SACUBITRIL\VALSARTAN
     Indication: Cardiac failure
     Dosage: 1 DF, QD (50 MG)
     Route: 048
     Dates: start: 20210727, end: 20210729
  2. ENTRESTO [Suspect]
     Active Substance: SACUBITRIL\VALSARTAN
     Dosage: 0.5 DF, QD (50 MG HALF TABLET)
     Route: 048
     Dates: start: 20210729, end: 20210802

REACTIONS (7)
  - Death [Fatal]
  - Ascites [Not Recovered/Not Resolved]
  - Urinary retention [Not Recovered/Not Resolved]
  - Renal failure [Not Recovered/Not Resolved]
  - Wrong technique in product usage process [Not Recovered/Not Resolved]
  - Hypotension [Recovered/Resolved]
  - Inappropriate schedule of product administration [Recovered/Resolved]

NARRATIVE: CASE EVENT DATE: 20210727
